FAERS Safety Report 4327480-4 (Version None)
Quarter: 2004Q1

REPORT INFORMATION
  Report Type: 
  Country: None (occurrence: None)
  Receive Date: 20040330
  Receipt Date: 20040330
  Transmission Date: 20041129
  Serious: Yes (Other)
  Sender: FDA-Public Use
  Company Number: None

PATIENT
  Age: 73 Year
  Sex: Male
  Weight: 110.6777 kg

DRUGS (1)
  1. REGLAN [Suspect]
     Indication: NAUSEA
     Dosage: 10 MG IV X 1
     Route: 042

REACTIONS (6)
  - DYSTONIA [None]
  - HYPOAESTHESIA [None]
  - PARAESTHESIA [None]
  - TARDIVE DYSKINESIA [None]
  - TONGUE DISORDER [None]
  - TREMOR [None]
